FAERS Safety Report 6090963-3 (Version None)
Quarter: 2009Q1

REPORT INFORMATION
  Report Type: 
  Country: None (occurrence: None)
  Receive Date: 20090225
  Receipt Date: 20090218
  Transmission Date: 20090719
  Serious: Yes (Hospitalization, Other)
  Sender: FDA-Public Use
  Company Number: GB-RANBAXY-2008RR-16910

PATIENT
  Age: 11 Year
  Sex: Male

DRUGS (2)
  1. ACETAMINOPHEN [Suspect]
     Indication: NASOPHARYNGITIS
     Dosage: 500 MG, UNK
  2. ACETAMINOPHEN [Suspect]

REACTIONS (12)
  - AMINOACIDURIA [None]
  - CONVULSION [None]
  - DRUG CLEARANCE INCREASED [None]
  - HEPATIC FAILURE [None]
  - KETOSIS [None]
  - LACTIC ACIDOSIS [None]
  - METABOLIC ACIDOSIS [None]
  - METABOLIC DISORDER [None]
  - PYREXIA [None]
  - RENAL IMPAIRMENT [None]
  - TRANSAMINASES INCREASED [None]
  - VOMITING [None]
